FAERS Safety Report 25634016 (Version 2)
Quarter: 2025Q4

REPORT INFORMATION
  Report Type: Spontaneous
  Country: US (occurrence: US)
  Receive Date: 20250801
  Receipt Date: 20251103
  Transmission Date: 20260118
  Serious: No
  Sender: SANOFI AVENTIS
  Company Number: US-SA-2025SA223739

PATIENT
  Sex: Female

DRUGS (2)
  1. DUPIXENT [Suspect]
     Active Substance: DUPILUMAB
     Indication: Dermatitis atopic
     Dosage: 200 MG, Q4W
     Route: 058
     Dates: start: 202407
  2. XOLAIR [Concomitant]
     Active Substance: OMALIZUMAB

REACTIONS (4)
  - Rebound atopic dermatitis [Unknown]
  - Rash [Unknown]
  - Therapeutic response shortened [Unknown]
  - Hypersensitivity [Unknown]
